FAERS Safety Report 9056871 (Version 1)
Quarter: 2013Q1

REPORT INFORMATION
  Report Type: Report from Study
  Country: JP (occurrence: JP)
  Receive Date: 20130201
  Receipt Date: 20130201
  Transmission Date: 20140127
  Serious: Yes (Other)
  Sender: FDA-Public Use
  Company Number: JP-GLAXOSMITHKLINE-B0860807A

PATIENT
  Age: 61 None
  Sex: Female
  Weight: 43 kg

DRUGS (5)
  1. TYKERB [Suspect]
     Indication: BREAST CANCER
     Route: 048
     Dates: start: 20110907
  2. XELODA [Concomitant]
     Route: 048
     Dates: start: 20110907
  3. ANTEBATE [Concomitant]
     Indication: PROPHYLAXIS
     Route: 061
     Dates: start: 20110907
  4. HIRUDOID [Concomitant]
     Indication: PROPHYLAXIS
     Route: 061
     Dates: start: 20110907
  5. DEPAKENE [Concomitant]
     Indication: PROPHYLAXIS
     Route: 048
     Dates: start: 20111030

REACTIONS (1)
  - Epilepsy [Recovered/Resolved]
